FAERS Safety Report 4522061-1 (Version None)
Quarter: 2004Q4

REPORT INFORMATION
  Report Type: 
  Country: None (occurrence: None)
  Receive Date: 20041209
  Receipt Date: 20030605
  Transmission Date: 20050328
  Serious: Yes (Disabling, Other)
  Sender: FDA-Public Use
  Company Number: US-MERCK-0306USA00902

PATIENT
  Age: 45 Year
  Sex: Female

DRUGS (1)
  1. VIOXX [Suspect]
     Route: 048

REACTIONS (6)
  - ADVERSE EVENT [None]
  - BACK DISORDER [None]
  - FEELING ABNORMAL [None]
  - HALLUCINATION, AUDITORY [None]
  - POLYTRAUMATISM [None]
  - SUICIDAL IDEATION [None]
